FAERS Safety Report 7279714-4 (Version None)
Quarter: 2011Q1

REPORT INFORMATION
  Report Type: 
  Country: None (occurrence: None)
  Receive Date: 20110203
  Receipt Date: 20110203
  Transmission Date: 20110831
  Serious: Yes (Disabling, Other)
  Sender: FDA-Public Use
  Company Number: None

PATIENT
  Age: 44 Year
  Sex: Female
  Weight: 90.7194 kg

DRUGS (1)
  1. LEVAQUIN [Suspect]
     Indication: SINUSITIS
     Dates: start: 20110118, end: 20110126

REACTIONS (6)
  - JOINT SWELLING [None]
  - JOINT RANGE OF MOTION DECREASED [None]
  - ASTHENIA [None]
  - PAIN [None]
  - NEUROPATHY PERIPHERAL [None]
  - GAIT DISTURBANCE [None]
